FAERS Safety Report 8536744-X (Version None)
Quarter: 2012Q3

REPORT INFORMATION
  Report Type: 
  Country: None (occurrence: None)
  Receive Date: 20120725
  Receipt Date: 20120720
  Transmission Date: 20120928
  Serious: Yes (Other)
  Sender: FDA-Public Use
  Company Number: CA-BAYER-2012-072754

PATIENT
  Sex: Female

DRUGS (4)
  1. ADVIL [Concomitant]
  2. MIRENA [Suspect]
     Dosage: UNK
     Dates: start: 20100101
  3. VITAMIN B-12 [Concomitant]
  4. VITAMIN D [Concomitant]

REACTIONS (9)
  - NAUSEA [None]
  - ANXIETY [None]
  - AMENORRHOEA [None]
  - MOTOR DYSFUNCTION [None]
  - VAGINAL HAEMORRHAGE [None]
  - LOSS OF CONTROL OF LEGS [None]
  - CHEST DISCOMFORT [None]
  - DECREASED APPETITE [None]
  - HYPOAESTHESIA [None]
